FAERS Safety Report 14271695 (Version 1)
Quarter: 2017Q4

REPORT INFORMATION
  Report Type: Spontaneous
  Country: US (occurrence: US)
  Receive Date: 20171211
  Receipt Date: 20171211
  Transmission Date: 20180321
  Serious: Yes (Other)
  Sender: FDA-Public Use
  Company Number: None

PATIENT
  Age: 74 Year
  Sex: Female
  Weight: 67.23 kg

DRUGS (8)
  1. SIMVASTATIN. [Concomitant]
     Active Substance: SIMVASTATIN
  2. HYDROCODONE BITARTRATE AND ACETAMINOPHEN [Concomitant]
     Active Substance: ACETAMINOPHEN\HYDROCODONE BITARTRATE
  3. FLUOXETINE [Concomitant]
     Active Substance: FLUOXETINE HYDROCHLORIDE
  4. VITAMIN D3 [Concomitant]
     Active Substance: CHOLECALCIFEROL
  5. OMEPRAZOLE. [Concomitant]
     Active Substance: OMEPRAZOLE
  6. CAPECITABINE. [Suspect]
     Active Substance: CAPECITABINE
     Indication: HEPATIC CANCER
     Route: 048
     Dates: start: 20170907, end: 20171211
  7. ALPRAZOLAM. [Concomitant]
     Active Substance: ALPRAZOLAM
  8. FERROUS SULFATE. [Concomitant]
     Active Substance: FERROUS SULFATE

REACTIONS (1)
  - Disease progression [None]

NARRATIVE: CASE EVENT DATE: 20171211
